FAERS Safety Report 7319856-8 (Version None)
Quarter: 2011Q1

REPORT INFORMATION
  Report Type: 
  Country: None (occurrence: None)
  Receive Date: 20110228
  Receipt Date: 20101026
  Transmission Date: 20110831
  Serious: No
  Sender: FDA-Public Use
  Company Number: A0888811A

PATIENT
  Age: 31 Year
  Sex: Female

DRUGS (8)
  1. FOLIC ACID [Concomitant]
  2. ALBUTEROL [Concomitant]
  3. POTASSIUM [Concomitant]
  4. FISH OIL [Concomitant]
  5. MULTI-VITAMIN [Concomitant]
  6. KLONOPIN [Concomitant]
  7. LAMICTAL [Suspect]
     Indication: BIPOLAR DISORDER
     Dosage: 150MG PER DAY
     Route: 048
     Dates: start: 20090601
  8. FLAX SEED OIL [Concomitant]

REACTIONS (8)
  - MUSCLE TWITCHING [None]
  - INSOMNIA [None]
  - AGITATION [None]
  - NAUSEA [None]
  - PAROSMIA [None]
  - MOOD SWINGS [None]
  - WEIGHT DECREASED [None]
  - PARAESTHESIA [None]
